FAERS Safety Report 22175631 (Version 1)
Quarter: 2023Q2

REPORT INFORMATION
  Report Type: Spontaneous
  Country: US (occurrence: None)
  Receive Date: 20230404
  Receipt Date: 20230404
  Transmission Date: 20230722
  Serious: Yes (Disabling)
  Sender: FDA-Public Use
  Company Number: None

PATIENT
  Age: 28 Year
  Sex: Female
  Weight: 62.1 kg

DRUGS (1)
  1. ENBREL [Suspect]
     Active Substance: ETANERCEPT
     Indication: Polyarthritis
     Dates: start: 20190215, end: 20230126

REACTIONS (3)
  - Demyelination [None]
  - Paraesthesia [None]
  - Central nervous system lesion [None]

NARRATIVE: CASE EVENT DATE: 20230226
